FAERS Safety Report 9535029 (Version 1)
Quarter: 2013Q3

REPORT INFORMATION
  Report Type: Spontaneous
  Country: PT (occurrence: PT)
  Receive Date: 20130918
  Receipt Date: 20130918
  Transmission Date: 20140515
  Serious: Yes (Other)
  Sender: FDA-Public Use
  Company Number: PT-MALLINCKRODT-T201304343

PATIENT
  Age: 80 Year
  Sex: Male
  Weight: 82 kg

DRUGS (4)
  1. OPTIRAY [Suspect]
     Indication: ANGIOGRAM
     Dosage: 100 ML, SINGLE
     Route: 042
     Dates: start: 20130807, end: 20130807
  2. AMLODIPINE BESYLATE [Concomitant]
     Indication: HYPERTENSION
     Dosage: 1 DOSE UNIT
     Route: 048
     Dates: start: 2011
  3. VALSARTAN [Concomitant]
     Indication: HYPERTENSION
     Dosage: 1 DOSE UNIT
     Route: 048
     Dates: start: 2011
  4. DIAZEPAM [Concomitant]
     Indication: INSOMNIA
     Dosage: 5 MG, UNK
     Route: 048

REACTIONS (2)
  - Drug eruption [Recovering/Resolving]
  - Rash [Recovering/Resolving]
